FAERS Safety Report 8921637 (Version 1)
Quarter: 2012Q4

REPORT INFORMATION
  Report Type: 
  Country: DE (occurrence: DE)
  Receive Date: 20121121
  Receipt Date: 20121121
  Transmission Date: 20130627
  Serious: Yes (Other)
  Sender: FDA-Public Use
  Company Number: DE-UCBSA-071023

PATIENT
  Age: 47 Year
  Sex: Male

DRUGS (10)
  1. LACOSAMIDE [Suspect]
     Indication: CONVULSION
     Dosage: UNKNOWN DOSE
  2. LACOSAMIDE [Suspect]
     Indication: CONVULSION
     Dosage: INCREASED DOSE
  3. LEVETIRACETAM [Concomitant]
     Indication: CONVULSION
     Dosage: 4000 MG
     Dates: start: 201110
  4. LEVETIRACETAM [Concomitant]
     Indication: CONVULSION
     Dosage: 2000 MG
  5. VALPROATE [Concomitant]
     Indication: CONVULSION
  6. PHENYTOIN [Concomitant]
     Indication: CONVULSION
  7. LAMOTRIGINE [Concomitant]
     Indication: CONVULSION
  8. CARBAMAZEPINE [Concomitant]
     Indication: CONVULSION
  9. OXCARBAZEPINE [Concomitant]
     Indication: CONVULSION
     Dosage: 1200 MG
  10. OXCARBAZEPINE [Concomitant]
     Indication: CONVULSION
     Dosage: 1500 MG

REACTIONS (10)
  - Suicidal ideation [Recovered/Resolved]
  - Fatigue [Unknown]
  - Memory impairment [Unknown]
  - Slow speech [Unknown]
  - Convulsion [Not Recovered/Not Resolved]
  - Mood swings [Recovered/Resolved]
  - Negative thoughts [Recovered/Resolved]
  - Depressed mood [Recovered/Resolved]
  - Tension [Recovered/Resolved]
  - Feeling abnormal [Recovered/Resolved]
